FAERS Safety Report 7290759-0 (Version None)
Quarter: 2011Q1

REPORT INFORMATION
  Report Type: 
  Country: None (occurrence: None)
  Receive Date: 20110214
  Receipt Date: 20110207
  Transmission Date: 20110831
  Serious: Yes (Hospitalization)
  Sender: FDA-Public Use
  Company Number: US-AMGEN-USASP2010012694

PATIENT
  Age: 63 Year
  Sex: Female

DRUGS (1)
  1. ENBREL [Suspect]
     Indication: RHEUMATOID ARTHRITIS
     Dosage: 50 MG, QWK
     Dates: start: 20070101

REACTIONS (10)
  - DEVICE FAILURE [None]
  - THERAPEUTIC RESPONSE DECREASED [None]
  - SINUSITIS [None]
  - HIP FRACTURE [None]
  - COUGH [None]
  - HEPATIC ENZYME INCREASED [None]
  - RHEUMATOID ARTHRITIS [None]
  - NASAL CONGESTION [None]
  - INCREASED TENDENCY TO BRUISE [None]
  - HAEMORRHAGIC DIATHESIS [None]
